FAERS Safety Report 4565976-0 (Version None)
Quarter: 2005Q1

REPORT INFORMATION
  Report Type: 
  Country: None (occurrence: None)
  Receive Date: 20050128
  Receipt Date: 20050125
  Transmission Date: 20050727
  Serious: Yes (Other)
  Sender: FDA-Public Use
  Company Number: K200401875

PATIENT
  Age: 48 Year
  Sex: Male

DRUGS (2)
  1. ALTACE [Suspect]
     Indication: HYPERTENSION
     Dosage: 5 + 10MG, QD, ORAL
     Route: 048
     Dates: start: 20040201, end: 20040718
  2. ALTACE [Suspect]
     Indication: HYPERTENSION
     Dosage: 5 + 10MG, QD, ORAL
     Route: 048
     Dates: start: 20040719, end: 20041129

REACTIONS (3)
  - ANGER [None]
  - DEPRESSION [None]
  - IRRITABILITY [None]
